FAERS Safety Report 4378278-2 (Version None)
Quarter: 2004Q2

REPORT INFORMATION
  Report Type: 
  Country: None (occurrence: None)
  Receive Date: 20040609
  Receipt Date: 20040601
  Transmission Date: 20050107
  Serious: Yes (Death, Life-Threatening, Hospitalization)
  Sender: FDA-Public Use
  Company Number: 04-06-0800

PATIENT
  Age: 64 Year
  Sex: Male

DRUGS (17)
  1. ONXOL (PACLITAXEL) INJECTABLE SOLUTION 6 MG/ML [Suspect]
     Dosage: 200MG/M2 Q3WK INTRAVENOUS
     Route: 042
     Dates: start: 20040305, end: 20040426
  2. CARBOPLATIN [Suspect]
     Dosage: 1 IN 3 WEEKS
     Dates: start: 20040305, end: 20040426
  3. PANITUMUMAB INJECTABLE [Suspect]
     Indication: NON-SMALL CELL LUNG CANCER
     Dosage: 2.5 MG/KG/WK
     Dates: start: 20040305, end: 20040426
  4. GRANISETRON HYDROCHLORIDE [Concomitant]
  5. OXYCONTIN [Concomitant]
  6. IBUPROFEN [Concomitant]
  7. SAW PALMETTO [Concomitant]
  8. PROCHLORPERAZINE EDISYLATE [Concomitant]
  9. LORAZEPAM [Concomitant]
  10. DEXAMETHASONE [Concomitant]
  11. MYLANTA [Concomitant]
  12. LOMOTIL [Concomitant]
  13. FAMOTIDINE [Concomitant]
  14. CIMETIDINE [Concomitant]
  15. DIPHENHYDRAMINE HCL [Concomitant]
  16. IBUPROFEN [Concomitant]
  17. DOCUSATE SODIUM [Concomitant]

REACTIONS (10)
  - BLOOD ALBUMIN DECREASED [None]
  - BLOOD CALCIUM DECREASED [None]
  - BLOOD POTASSIUM DECREASED [None]
  - CATHETER RELATED INFECTION [None]
  - CEREBROVASCULAR ACCIDENT [None]
  - DEHYDRATION [None]
  - HAEMOGLOBIN DECREASED [None]
  - OXYGEN SATURATION DECREASED [None]
  - SEPSIS [None]
  - URINARY TRACT INFECTION STAPHYLOCOCCAL [None]
